FAERS Safety Report 5275446-2 (Version None)
Quarter: 2007Q1

REPORT INFORMATION
  Report Type: 
  Country: None (occurrence: None)
  Receive Date: 20070326
  Receipt Date: 20070312
  Transmission Date: 20070707
  Serious: Yes (Death, Hospitalization, Disabling)
  Sender: FDA-Public Use
  Company Number: JP-ROCHE-464528

PATIENT
  Age: 74 Year
  Sex: Female
  Weight: 69 kg

DRUGS (13)
  1. ROCEPHIN [Suspect]
     Indication: PYELONEPHRITIS
     Route: 042
     Dates: start: 20060915, end: 20060919
  2. DIOVAN [Concomitant]
     Route: 048
  3. MEROPEN [Concomitant]
     Dosage: GENERIC NAME REPORTED AS: MEROPENEM TRIHYDRATE.
     Route: 042
  4. INSULIN [Concomitant]
     Dosage: ROUTE REPORTED AS: INJECTABLE (NOT OTHERWISE SPECIFIED).
     Route: 050
  5. METFORMIN HYDROCHLORIDE [Concomitant]
     Dosage: DRUG NAME REPORTED AS: MEDET (METFORMIN HYDROCHLORIDE).
     Route: 048
  6. ZYRTEC [Concomitant]
     Dosage: FORM REPORTED AS: ORAL FORMULATION (NOT OTHERWISE SPECIFIED).
     Route: 048
  7. BUP-4 [Concomitant]
     Dosage: FORM REPORTED AS: ORAL FORMULATION (NOT OTHERWISE SPECIFIED). GENERIC REPORTED AS: PROPIVERINE HYDR+
     Route: 048
  8. TRICOR [Concomitant]
     Route: 048
  9. HUMULIN N [Concomitant]
     Route: 058
  10. BETAMETHASONE [Concomitant]
     Dosage: DRUG REPORTED AS ^ANTEBATE:OINTMENT (BETAMETHASONE BUTYRATE PROPIONATE)^
     Route: 061
  11. XYLIT [Concomitant]
     Dosage: DRUG STOPPED ON UNKNOWN DATE IN 2006
     Route: 042
     Dates: start: 20060915
  12. LACTATED RINGER'S [Concomitant]
     Dosage: DRUG REPORTED AS ^HARTMANN (LACTATED RINGERS SOLUTION)^
     Route: 041
     Dates: start: 20060915, end: 20060919
  13. CERCINE [Concomitant]
     Dosage: ROUTE REPORTED AS INJECTABLE (NOT OTHERWISE SPECIFIED).
     Route: 050
     Dates: start: 20060919, end: 20060919

REACTIONS (4)
  - DEATH [None]
  - DEPRESSED LEVEL OF CONSCIOUSNESS [None]
  - DRUG ERUPTION [None]
  - RENAL FAILURE [None]
